FAERS Safety Report 18266689 (Version 1)
Quarter: 2020Q3

REPORT INFORMATION
  Report Type: Spontaneous
  Country: ID (occurrence: ID)
  Receive Date: 20200915
  Receipt Date: 20200915
  Transmission Date: 20201103
  Serious: Yes (Other)
  Sender: FDA-Public Use
  Company Number: ID-B.I. PHARMACEUTICALS,INC./RIDGEFIELD-2020-BI-043759

PATIENT
  Age: 6 Decade
  Sex: Male

DRUGS (4)
  1. GILOTRIF [Suspect]
     Active Substance: AFATINIB
  2. GILOTRIF [Suspect]
     Active Substance: AFATINIB
  3. GILOTRIF [Suspect]
     Active Substance: AFATINIB
     Indication: ADENOCARCINOMA
     Route: 065
  4. GILOTRIF [Suspect]
     Active Substance: AFATINIB

REACTIONS (5)
  - Wrong technique in product usage process [Unknown]
  - Diarrhoea [Recovered/Resolved]
  - Malignant neoplasm progression [Unknown]
  - Mucosal inflammation [Recovered/Resolved]
  - Chapped lips [Recovered/Resolved]
